FAERS Safety Report 14566381 (Version 1)
Quarter: 2018Q1

REPORT INFORMATION
  Report Type: Spontaneous
  Country: US (occurrence: US)
  Receive Date: 20180222
  Receipt Date: 20180222
  Transmission Date: 20180509
  Serious: Yes (Death)
  Sender: FDA-Public Use
  Company Number: None

PATIENT
  Age: 71 Year
  Sex: Male

DRUGS (14)
  1. SIMVASTATIN. [Concomitant]
     Active Substance: SIMVASTATIN
  2. PREVACID [Concomitant]
     Active Substance: LANSOPRAZOLE
  3. OCUVITE TAB LUTEIN [Concomitant]
  4. METOPROL TAR [Concomitant]
  5. ARANESP [Suspect]
     Active Substance: DARBEPOETIN ALFA
     Indication: ACUTE MYELOID LEUKAEMIA
     Route: 058
     Dates: start: 20150821
  6. ONDANSETRON [Concomitant]
     Active Substance: ONDANSETRON
  7. VIDAZA [Concomitant]
     Active Substance: AZACITIDINE
  8. POTASSIUM POW SORBATE [Concomitant]
  9. METFORMIN [Concomitant]
     Active Substance: METFORMIN HYDROCHLORIDE
  10. FISH OIL [Concomitant]
     Active Substance: FISH OIL
  11. LORAZEPAM. [Concomitant]
     Active Substance: LORAZEPAM
  12. FUROSEMIDE. [Concomitant]
     Active Substance: FUROSEMIDE
  13. ASPIRIN. [Concomitant]
     Active Substance: ASPIRIN
  14. ALLOPURINOL. [Concomitant]
     Active Substance: ALLOPURINOL

REACTIONS (1)
  - Acute myeloid leukaemia [None]

NARRATIVE: CASE EVENT DATE: 20180217
